FAERS Safety Report 5763217-X (Version None)
Quarter: 2008Q2

REPORT INFORMATION
  Report Type: 
  Country: None (occurrence: None)
  Receive Date: 20080609
  Receipt Date: 20080530
  Transmission Date: 20081010
  Serious: Yes (Other)
  Sender: FDA-Public Use
  Company Number: BR-PFIZER INC-2008046811

PATIENT
  Sex: Female
  Weight: 70 kg

DRUGS (2)
  1. DOSTINEX [Suspect]
     Indication: LACTATION DISORDER
     Dosage: TEXT:0.5MG 1X/DAY EVERY DAY TDD:0.5MG
     Route: 048
     Dates: start: 20080503, end: 20080504
  2. LEVONORGESTREL [Concomitant]
     Route: 065

REACTIONS (7)
  - BREAST ENGORGEMENT [None]
  - BREAST PAIN [None]
  - DIZZINESS [None]
  - DRUG INEFFECTIVE [None]
  - MALAISE [None]
  - MIGRAINE [None]
  - NAUSEA [None]
